FAERS Safety Report 15203969 (Version 1)
Quarter: 2018Q3

REPORT INFORMATION
  Report Type: Spontaneous
  Country: CA (occurrence: CA)
  Receive Date: 20180628
  Receipt Date: 20180628
  Transmission Date: 20181010
  Serious: Yes (Other)
  Sender: FDA-Public Use
  Company Number: None

PATIENT
  Age: 45 Year
  Sex: Female
  Weight: 56.25 kg

DRUGS (4)
  1. AMITRIPTYLINE 25MG [Concomitant]
     Active Substance: AMITRIPTYLINE
     Dates: start: 20160413
  2. RIZATRIPTAN 10MG [Concomitant]
     Active Substance: RIZATRIPTAN
     Dates: start: 20160413
  3. NITROFURANTOIN MONOHYDRATE MACROCRYSTALS [Suspect]
     Active Substance: NITROFURANTOIN\NITROFURANTOIN MONOHYDRATE
     Indication: URINARY TRACT INFECTION
     Route: 048
     Dates: start: 20180322, end: 20180323
  4. LEVOTHYROXINE 50MCG [Concomitant]
     Active Substance: LEVOTHYROXINE
     Dates: start: 20150420

REACTIONS (4)
  - Neuropathy peripheral [None]
  - Pain in extremity [None]
  - Gait inability [None]
  - Therapy cessation [None]

NARRATIVE: CASE EVENT DATE: 20180322
